FAERS Safety Report 10341942 (Version 1)
Quarter: 2014Q3

REPORT INFORMATION
  Report Type: Spontaneous
  Country: KR (occurrence: KR)
  Receive Date: 20140725
  Receipt Date: 20140725
  Transmission Date: 20150326
  Serious: Yes (Other)
  Sender: FDA-Public Use
  Company Number: KR-JNJFOC-20140709872

PATIENT
  Age: 72 Year
  Sex: Male

DRUGS (2)
  1. DURAGESIC [Suspect]
     Active Substance: FENTANYL
     Indication: PRODUCT USED FOR UNKNOWN INDICATION
     Route: 062
  2. DURAGESIC [Suspect]
     Active Substance: FENTANYL
     Indication: PRODUCT USED FOR UNKNOWN INDICATION
     Route: 062

REACTIONS (3)
  - Delirium [Unknown]
  - Nausea [Unknown]
  - Mental status changes [Unknown]
